FAERS Safety Report 4635673-1 (Version None)
Quarter: 2005Q2

REPORT INFORMATION
  Report Type: 
  Country: None (occurrence: None)
  Receive Date: 20050414
  Receipt Date: 20050411
  Transmission Date: 20051028
  Serious: Yes (Death, Hospitalization)
  Sender: FDA-Public Use
  Company Number: THQ2004A00864

PATIENT
  Age: 89 Year
  Sex: Male

DRUGS (13)
  1. LANSOPRAZOLE [Suspect]
     Dates: start: 20040402, end: 20040401
  2. PLENDIL [Suspect]
     Indication: ESSENTIAL HYPERTENSION
     Dosage: (1 IN 1 D)
     Dates: start: 20040326, end: 20040413
  3. RAMIPRIL [Suspect]
     Indication: CARDIAC FAILURE
     Dates: start: 20040402, end: 20040413
  4. KLEXANE (HEPARIN-FRACTION, SODIUM SALT) [Suspect]
     Dates: start: 20040326, end: 20040413
  5. ASPIRIN [Suspect]
  6. ATENOLOL [Suspect]
     Indication: ANGINA PECTORIS
     Dates: start: 19990101, end: 20040401
  7. PLAVIX [Suspect]
     Dosage: 75 MG (1 D)
     Dates: start: 20040326, end: 20040413
  8. WARFARIN SODIUM [Concomitant]
  9. NITROMEX (GLYCERYL TRINITRATE) [Concomitant]
  10. DEXOFEN (DEXTROMETHORPHAN) [Concomitant]
  11. SPIRONOLACTONE [Concomitant]
  12. ALVEDON (PARACETAMOL) [Concomitant]
  13. SIMVASTATIN [Concomitant]

REACTIONS (10)
  - ANOREXIA [None]
  - ASTHENIA [None]
  - BRADYCARDIA [None]
  - CARDIAC FAILURE [None]
  - DEPRESSED LEVEL OF CONSCIOUSNESS [None]
  - FATIGUE [None]
  - GENERAL PHYSICAL HEALTH DETERIORATION [None]
  - HAEMOGLOBIN ABNORMAL [None]
  - MYOCARDIAL INFARCTION [None]
  - RASH [None]
